FAERS Safety Report 8947887 (Version 2)
Quarter: 2013Q1

REPORT INFORMATION
  Report Type: Spontaneous
  Country: FR (occurrence: FR)
  Receive Date: 20121204
  Receipt Date: 20130107
  Transmission Date: 20140127
  Serious: Yes (Other)
  Sender: FDA-Public Use
  Company Number: FR-PFIZER INC-2012300657

PATIENT
  Age: 56 Year
  Sex: Female
  Weight: 90 kg

DRUGS (2)
  1. MEDROL [Suspect]
     Indication: LUNG DISORDER
     Dosage: 16 MG, 2X/DAY
     Route: 048
     Dates: start: 20121117, end: 20121123
  2. MEDROL [Suspect]
     Indication: OSTEOARTHRITIS
     Dosage: 16 MG, 1X/DAY
     Route: 048
     Dates: start: 20121124, end: 20121128

REACTIONS (2)
  - Visual acuity reduced [Recovered/Resolved]
  - Blood glucose increased [Unknown]
